FAERS Safety Report 4735377-0 (Version None)
Quarter: 2005Q3

REPORT INFORMATION
  Report Type: 
  Country: None (occurrence: None)
  Receive Date: 20050805
  Receipt Date: 20030808
  Transmission Date: 20060218
  Serious: Yes (Hospitalization)
  Sender: FDA-Public Use
  Company Number: US-AMGEN-US042940

PATIENT
  Sex: Male
  Weight: 29.4 kg

DRUGS (12)
  1. EPOGEN [Suspect]
     Indication: RENAL FAILURE CHRONIC
     Route: 058
     Dates: start: 19990301
  2. ARANESP [Suspect]
     Indication: RENAL FAILURE CHRONIC
     Route: 058
     Dates: start: 20030501
  3. ROCALTROL [Concomitant]
     Dates: start: 20021101
  4. OSCAL [Concomitant]
  5. RECOMBINANT HUMAN GROWTH HORMONE [Concomitant]
  6. LABETALOL [Concomitant]
     Dates: start: 20030401
  7. NIFEREX [Concomitant]
     Dates: start: 19960401
  8. PROCARDIA XL [Concomitant]
     Dates: start: 20011001
  9. MACRODANTIN [Concomitant]
     Dates: start: 20030501
  10. PREDNISONE [Concomitant]
     Dates: start: 19940101
  11. TACROLIMUS [Concomitant]
     Dates: start: 19980201
  12. MYCOPHENOLATE MOFETIL [Concomitant]
     Dates: start: 20030501

REACTIONS (4)
  - BLOOD CREATININE INCREASED [None]
  - BLOOD PRESSURE INCREASED [None]
  - OCCULT BLOOD POSITIVE [None]
  - THERAPEUTIC RESPONSE DECREASED [None]
